FAERS Safety Report 7591175-4 (Version None)
Quarter: 2011Q3

REPORT INFORMATION
  Report Type: 
  Country: None (occurrence: None)
  Receive Date: 20110705
  Receipt Date: 20110624
  Transmission Date: 20111222
  Serious: Yes (Other)
  Sender: FDA-Public Use
  Company Number: US-ASTRAZENECA-2011SE38432

PATIENT
  Sex: Male
  Weight: 72.6 kg

DRUGS (6)
  1. GLYBURIDE [Concomitant]
     Indication: DIABETES MELLITUS
     Route: 048
     Dates: start: 20110101, end: 20110101
  2. SEROQUEL [Suspect]
     Indication: HALLUCINATION
     Route: 048
     Dates: end: 20110101
  3. MULTI-VITAMIN [Concomitant]
     Route: 048
     Dates: start: 20110101, end: 20110101
  4. SEROQUEL [Suspect]
     Indication: ANGER
     Route: 048
     Dates: end: 20110101
  5. ASPIRIN [Concomitant]
     Route: 048
     Dates: start: 20110101, end: 20110101
  6. LORATADINE [Concomitant]
     Route: 048
     Dates: start: 20110101, end: 20110101

REACTIONS (3)
  - CEREBROVASCULAR ACCIDENT [None]
  - SOMNOLENCE [None]
  - TRANSIENT ISCHAEMIC ATTACK [None]
